FAERS Safety Report 23125667 (Version 1)
Quarter: 2023Q4

REPORT INFORMATION
  Report Type: Spontaneous
  Country: US (occurrence: US)
  Receive Date: 20231030
  Receipt Date: 20231030
  Transmission Date: 20240109
  Serious: Yes (Other)
  Sender: FDA-Public Use
  Company Number: US-VERTEX PHARMACEUTICALS-2023-016230

PATIENT

DRUGS (1)
  1. TRIKAFTA [Suspect]
     Active Substance: ELEXACAFTOR\IVACAFTOR\TEZACAFTOR
     Indication: Cystic fibrosis
     Dosage: UNKNOWN DOSAGE REGIMEN
     Route: 048

REACTIONS (23)
  - Suicidal ideation [Unknown]
  - Suicide attempt [Unknown]
  - Anxiety [Unknown]
  - Nervousness [Unknown]
  - Stress [Unknown]
  - Agitation [Unknown]
  - Irritability [Unknown]
  - Body dysmorphic disorder [Unknown]
  - Mental impairment [Unknown]
  - Memory impairment [Unknown]
  - Disturbance in attention [Unknown]
  - Aphasia [Unknown]
  - Insomnia [Unknown]
  - Binge eating [Unknown]
  - Selective eating disorder [Unknown]
  - Excessive exercise [Unknown]
  - Intentional product misuse [Unknown]
  - Defiant behaviour [Unknown]
  - Feeling guilty [Unknown]
  - Alcohol use [Unknown]
  - Substance use [Unknown]
  - Mental disorder [Unknown]
  - Depression [Unknown]
